FAERS Safety Report 10081926 (Version 1)
Quarter: 2014Q2

REPORT INFORMATION
  Report Type: Spontaneous
  Country: FR (occurrence: FR)
  Receive Date: 20140416
  Receipt Date: 20140416
  Transmission Date: 20141212
  Serious: Yes (Hospitalization)
  Sender: FDA-Public Use
  Company Number: FR-GLAXOSMITHKLINE-B0984197A

PATIENT
  Age: 16 Month
  Sex: Female

DRUGS (1)
  1. ARIXTRA [Suspect]
     Indication: ACCIDENTAL EXPOSURE TO PRODUCT
     Dosage: 2.5MG SEE DOSAGE TEXT
     Route: 048
     Dates: start: 201404, end: 201404

REACTIONS (1)
  - Accidental exposure to product [Unknown]
